FAERS Safety Report 19659956 (Version 1)
Quarter: 2021Q3

REPORT INFORMATION
  Report Type: Spontaneous
  Country: IN (occurrence: IN)
  Receive Date: 20210805
  Receipt Date: 20210805
  Transmission Date: 20211014
  Serious: Yes (Hospitalization)
  Sender: FDA-Public Use
  Company Number: IN-DRREDDYS-LIT/IND/21/0138506

PATIENT
  Age: 5 Year
  Sex: Female

DRUGS (2)
  1. VENETOCLAX. [Suspect]
     Active Substance: VENETOCLAX
     Indication: ACUTE MYELOMONOCYTIC LEUKAEMIA
  2. AZACITIDINE. [Suspect]
     Active Substance: AZACITIDINE
     Indication: ACUTE MYELOMONOCYTIC LEUKAEMIA

REACTIONS (8)
  - Dilatation ventricular [Unknown]
  - Left ventricular hypertrophy [Unknown]
  - Multisystem inflammatory syndrome in children [Unknown]
  - Pyrexia [Unknown]
  - Drug ineffective [Unknown]
  - Diarrhoea [Unknown]
  - Tachycardia [Unknown]
  - Cardiomegaly [Unknown]
